FAERS Safety Report 11271706 (Version 1)
Quarter: 2015Q3

REPORT INFORMATION
  Report Type: Spontaneous
  Country: US (occurrence: US)
  Receive Date: 20150715
  Receipt Date: 20150715
  Transmission Date: 20151125
  Serious: Yes (Hospitalization, Other)
  Sender: FDA-Public Use
  Company Number: US-PAR PHARMACEUTICAL, INC-2015SCPR014133

PATIENT

DRUGS (24)
  1. SYMBICORT [Suspect]
     Active Substance: BUDESONIDE\FORMOTEROL FUMARATE DIHYDRATE
     Indication: ASTHMA
     Dosage: 2 PUFFS, BID
     Route: 055
  2. TRAZODONE [Concomitant]
     Active Substance: TRAZODONE HYDROCHLORIDE
     Indication: MENTAL DISORDER
     Dosage: 50 MG, HS
     Route: 048
     Dates: start: 1996
  3. HYDROCHLOROTHIAZIDE. [Concomitant]
     Active Substance: HYDROCHLOROTHIAZIDE
     Indication: HYPERTENSION
     Dosage: 12.5 MG, DAILY
     Route: 048
     Dates: start: 2012
  4. PROAIR HFA [Concomitant]
     Active Substance: ALBUTEROL SULFATE
     Indication: INHALATION THERAPY
     Dosage: 2 DF, PRN
     Route: 055
  5. PROZAC [Concomitant]
     Active Substance: FLUOXETINE HYDROCHLORIDE
     Indication: ANXIETY
  6. SYMBICORT [Suspect]
     Active Substance: BUDESONIDE\FORMOTEROL FUMARATE DIHYDRATE
     Indication: CHRONIC OBSTRUCTIVE PULMONARY DISEASE
  7. LISINOPRIL. [Suspect]
     Active Substance: LISINOPRIL
     Indication: HYPERTENSION
     Dosage: 40 MG, DAILY
     Route: 048
  8. SIMVASTATIN. [Concomitant]
     Active Substance: SIMVASTATIN
     Indication: BLOOD CHOLESTEROL INCREASED
     Dosage: 40 MG, HS
     Route: 048
     Dates: start: 2010
  9. PROZAC [Concomitant]
     Active Substance: FLUOXETINE HYDROCHLORIDE
     Indication: DEPRESSION
     Dosage: 40 MG, DAILY
     Route: 048
     Dates: start: 1996
  10. PROZAC [Concomitant]
     Active Substance: FLUOXETINE HYDROCHLORIDE
     Indication: POST-TRAUMATIC STRESS DISORDER
  11. PROZAC [Concomitant]
     Active Substance: FLUOXETINE HYDROCHLORIDE
     Indication: MENTAL DISORDER
  12. NEURONTIN [Concomitant]
     Active Substance: GABAPENTIN
     Indication: NEUROPATHY PERIPHERAL
     Dosage: 100 MG, TID
     Route: 048
     Dates: start: 201504
  13. LANTUS [Concomitant]
     Active Substance: INSULIN GLARGINE
     Indication: BLOOD GLUCOSE INCREASED
     Dosage: 40 I.U., DAILY
     Route: 058
  14. XANAX [Concomitant]
     Active Substance: ALPRAZOLAM
     Indication: ANXIETY
     Dosage: 1 MG, QID
     Route: 048
     Dates: start: 1996
  15. ZYRTEC [Concomitant]
     Active Substance: CETIRIZINE HYDROCHLORIDE
     Indication: HYPERSENSITIVITY
     Dosage: 10 MG, HS
     Route: 048
     Dates: start: 2014
  16. FLONASE [Concomitant]
     Active Substance: FLUTICASONE PROPIONATE
     Indication: NASAL DISORDER
     Dosage: 2 DF, BID
     Route: 045
  17. XANAX [Concomitant]
     Active Substance: ALPRAZOLAM
     Indication: POST-TRAUMATIC STRESS DISORDER
  18. PROZAC [Concomitant]
     Active Substance: FLUOXETINE HYDROCHLORIDE
     Indication: PANIC ATTACK
  19. ACCOLATE [Suspect]
     Active Substance: ZAFIRLUKAST
     Indication: ASTHMA
     Dosage: 1 DF, BID
     Route: 048
     Dates: start: 2013
  20. OMEPRAZOLE. [Suspect]
     Active Substance: OMEPRAZOLE
     Indication: ABDOMINAL DISCOMFORT
     Dosage: 40 MG, DAILY
     Route: 048
     Dates: start: 2013
  21. GLYBURIDE. [Concomitant]
     Active Substance: GLYBURIDE
     Indication: BLOOD GLUCOSE ABNORMAL
     Dosage: 5 MG, DAILY
     Route: 048
  22. HUMULIN R [Concomitant]
     Active Substance: INSULIN HUMAN
     Indication: BLOOD GLUCOSE INCREASED
     Dosage: UNK, PRN
     Route: 058
  23. XANAX [Concomitant]
     Active Substance: ALPRAZOLAM
     Indication: DEPRESSION
  24. TRAZODONE [Concomitant]
     Active Substance: TRAZODONE HYDROCHLORIDE
     Indication: SLEEP DISORDER

REACTIONS (9)
  - Post procedural complication [Unknown]
  - Seasonal allergy [Unknown]
  - Cataract [Unknown]
  - Immune system disorder [Unknown]
  - Visual impairment [Not Recovered/Not Resolved]
  - Allergy to plants [Unknown]
  - Stress [Unknown]
  - Asthma [Unknown]
  - Retinal scar [Unknown]

NARRATIVE: CASE EVENT DATE: 2013
